FAERS Safety Report 13660785 (Version 1)
Quarter: 2017Q2

REPORT INFORMATION
  Report Type: Spontaneous
  Country: US (occurrence: US)
  Receive Date: 20170616
  Receipt Date: 20170616
  Transmission Date: 20170830
  Serious: No
  Sender: FDA-Public Use
  Company Number: US-TEVA-777585ACC

PATIENT
  Sex: Female
  Weight: 59.02 kg

DRUGS (1)
  1. COPAXONE [Suspect]
     Active Substance: GLATIRAMER ACETATE
     Route: 058

REACTIONS (4)
  - Injection site pain [Unknown]
  - Fatigue [Unknown]
  - Injection site urticaria [Unknown]
  - Injection site hypoaesthesia [Unknown]
